FAERS Safety Report 25192515 (Version 2)
Quarter: 2025Q2

REPORT INFORMATION
  Report Type: Report from Study
  Country: CA (occurrence: CA)
  Receive Date: 20250414
  Receipt Date: 20250502
  Transmission Date: 20250716
  Serious: Yes (Hospitalization, Other)
  Sender: DAIICHI
  Company Number: CA-AstraZeneca-CH-00842086A

PATIENT
  Sex: Female
  Weight: 38.9 kg

DRUGS (2)
  1. ENHERTU [Suspect]
     Active Substance: FAM-TRASTUZUMAB DERUXTECAN-NXKI
     Indication: HER2 positive breast cancer
     Dosage: 216 MG, ONCE EVERY 3 WK (216 MILLIGRAM)
     Route: 042
     Dates: start: 20220627
  2. DURVALUMAB [Concomitant]
     Active Substance: DURVALUMAB
     Indication: Product used for unknown indication
     Route: 065

REACTIONS (2)
  - Hip fracture [Recovering/Resolving]
  - Inappropriate schedule of product administration [Unknown]
